FAERS Safety Report 7775423-3 (Version None)
Quarter: 2011Q3

REPORT INFORMATION
  Report Type: 
  Country: None (occurrence: None)
  Receive Date: 20110923
  Receipt Date: 20110916
  Transmission Date: 20111222
  Serious: Yes (Life-Threatening, Hospitalization)
  Sender: FDA-Public Use
  Company Number: DE-CEPHALON-2011003801

PATIENT
  Sex: Female
  Weight: 65 kg

DRUGS (5)
  1. TREANDA [Suspect]
     Indication: LYMPHOMA
     Route: 042
     Dates: start: 20110321, end: 20110322
  2. MABTHERA [Concomitant]
  3. IBUPROFEN [Concomitant]
  4. METAMIZOLE [Concomitant]
  5. METOCLOPRAMIDE [Concomitant]

REACTIONS (1)
  - HAEMOLYTIC ANAEMIA [None]
